FAERS Safety Report 7350559-X (Version None)
Quarter: 2011Q1

REPORT INFORMATION
  Report Type: 
  Country: None (occurrence: None)
  Receive Date: 20110314
  Receipt Date: 20110308
  Transmission Date: 20110831
  Serious: Yes (Hospitalization)
  Sender: FDA-Public Use
  Company Number: ES-PFIZER INC-2011050278

PATIENT
  Age: 65 Year
  Sex: Male

DRUGS (2)
  1. TACROLIMUS [Interacting]
     Indication: LUNG TRANSPLANT
     Dosage: UNK
     Route: 048
     Dates: start: 20090101, end: 20100803
  2. VFEND [Suspect]
     Indication: CANDIDIASIS
     Dosage: UNK
     Route: 048
     Dates: start: 20090801, end: 20100802

REACTIONS (2)
  - DRUG INTERACTION [None]
  - NEOPLASM SKIN [None]
